FAERS Safety Report 7548208-0 (Version None)
Quarter: 2011Q2

REPORT INFORMATION
  Report Type: 
  Country: None (occurrence: None)
  Receive Date: 20110615
  Receipt Date: 20110523
  Transmission Date: 20111010
  Serious: Yes (Hospitalization, Other)
  Sender: FDA-Public Use
  Company Number: US-BAYER-2011-019408

PATIENT
  Age: 46 Year
  Sex: Female

DRUGS (22)
  1. YASMIN [Suspect]
     Indication: PREMENSTRUAL SYNDROME
  2. DROSPIRENONE AND ETHINYL ESTRADIOL [Suspect]
     Indication: ENDOMETRIOSIS
  3. DROSPIRENONE AND ETHINYL ESTRADIOL [Suspect]
     Indication: PAIN
  4. TYLENOL PM [Concomitant]
     Indication: SLEEP DISORDER
     Dosage: UNK UNK, HS
     Route: 048
  5. DROSPIRENONE AND ETHINYL ESTRADIOL [Suspect]
     Indication: CONTRACEPTION
     Dosage: UNK
     Dates: start: 20000101, end: 20100122
  6. MUCINEX DM [Concomitant]
     Indication: PRODUCT USED FOR UNKNOWN INDICATION
     Route: 048
  7. HYDROCODONE BITARTRATE AND ACETAMINOPHEN [Concomitant]
     Indication: PRODUCT USED FOR UNKNOWN INDICATION
     Dosage: 750 MG, UNK
     Route: 048
  8. ESTROSTEP [Concomitant]
     Indication: PRODUCT USED FOR UNKNOWN INDICATION
  9. YASMIN [Suspect]
     Indication: PAIN
  10. DROSPIRENONE AND ETHINYL ESTRADIOL [Suspect]
     Indication: PREMENSTRUAL SYNDROME
  11. ALBUTEROL SULFATE AUTOHALER [Concomitant]
     Indication: PRODUCT USED FOR UNKNOWN INDICATION
     Dosage: 90 UNK, UNK
     Route: 048
  12. ZANAFLEX [Concomitant]
     Indication: PRODUCT USED FOR UNKNOWN INDICATION
     Dosage: 4 MG, UNK
     Route: 048
  13. XANAX [Concomitant]
     Indication: PRODUCT USED FOR UNKNOWN INDICATION
     Dosage: 1 MG, TID
     Route: 048
  14. YASMIN [Suspect]
     Indication: CONTRACEPTION
     Dosage: UNK
     Dates: start: 20000101, end: 20100122
  15. YASMIN [Suspect]
     Indication: ENDOMETRIOSIS
  16. CELEXA [Concomitant]
     Indication: PRODUCT USED FOR UNKNOWN INDICATION
     Dosage: 20 MG, HS
     Route: 048
  17. EMERGEN-C [Concomitant]
     Indication: IMMUNODEFICIENCY
     Dosage: UNK UNK, TID
     Route: 048
  18. SINGULAIR [Concomitant]
     Indication: PRODUCT USED FOR UNKNOWN INDICATION
     Dosage: 10 MG, QD
     Route: 048
  19. ADVIL LIQUI-GELS [Concomitant]
     Indication: PRODUCT USED FOR UNKNOWN INDICATION
     Route: 048
  20. MULTI-VITAMINS [Concomitant]
     Indication: PRODUCT USED FOR UNKNOWN INDICATION
     Dosage: UNK UNK, QD
     Route: 048
  21. ENSURE PLUS [Concomitant]
     Indication: APHAGIA
     Dosage: UNK UNK, TID
     Route: 048
  22. POWERARD [Concomitant]
     Indication: PRODUCT USED FOR UNKNOWN INDICATION
     Route: 048

REACTIONS (11)
  - PAIN [None]
  - DYSPNOEA [None]
  - HYPERTENSION [None]
  - GALLBLADDER NON-FUNCTIONING [None]
  - HEART RATE INCREASED [None]
  - GASTRITIS [None]
  - CHOLECYSTITIS CHRONIC [None]
  - BREAST MASS [None]
  - ANXIETY [None]
  - CONVULSION [None]
  - DRUG HYPERSENSITIVITY [None]
